FAERS Safety Report 12748410 (Version 1)
Quarter: 2016Q3

REPORT INFORMATION
  Report Type: Spontaneous
  Country: CH (occurrence: CH)
  Receive Date: 20160915
  Receipt Date: 20160915
  Transmission Date: 20161109
  Serious: No
  Sender: FDA-Public Use
  Company Number: CH-B. BRAUN MEDICAL INC.-1057348

PATIENT
  Sex: Female

DRUGS (2)
  1. MANNITOL. [Suspect]
     Active Substance: MANNITOL
     Dates: start: 20150226
  2. HYOSCINE BUTYLBROMIDE [Suspect]
     Active Substance: BUTYLSCOPOLAMINE
     Route: 048

REACTIONS (1)
  - Vision blurred [None]
